FAERS Safety Report 7167002-6 (Version None)
Quarter: 2010Q4

REPORT INFORMATION
  Report Type: 
  Country: None (occurrence: None)
  Receive Date: 20101216
  Receipt Date: 20101213
  Transmission Date: 20110411
  Serious: Yes (Hospitalization)
  Sender: FDA-Public Use
  Company Number: A0899564A

PATIENT
  Age: 64 Year
  Sex: Female

DRUGS (8)
  1. PAXIL [Suspect]
     Dosage: 12.5MG PER DAY
     Route: 048
     Dates: start: 19990101
  2. HUMALOG [Concomitant]
  3. LANTUS [Concomitant]
  4. LIPITOR [Concomitant]
  5. AMARYL [Concomitant]
  6. UNSPECIFIED MEDICATION [Concomitant]
  7. ASPIRIN [Concomitant]
  8. TENORMIN [Concomitant]

REACTIONS (1)
  - BRAIN STEM STROKE [None]
